FAERS Safety Report 4845000-2 (Version None)
Quarter: 2005Q4

REPORT INFORMATION
  Report Type: 
  Country: None (occurrence: None)
  Receive Date: 20051205
  Receipt Date: 20051006
  Transmission Date: 20060501
  Serious: Yes (Hospitalization, Disabling)
  Sender: FDA-Public Use
  Company Number: US-MERCK-0510USA06383

PATIENT
  Age: 31 Year
  Sex: Female
  Weight: 59 kg

DRUGS (4)
  1. VIOXX [Suspect]
     Indication: PAIN
     Route: 048
  2. VIOXX [Suspect]
     Route: 048
     Dates: start: 20000101, end: 20001212
  3. VIOXX [Suspect]
     Route: 048
     Dates: end: 20031101
  4. TYLENOL [Concomitant]
     Route: 065

REACTIONS (25)
  - BACK PAIN [None]
  - BRONCHITIS [None]
  - CAESAREAN SECTION [None]
  - CEREBROVASCULAR ACCIDENT [None]
  - CONVULSION [None]
  - DIARRHOEA [None]
  - DRUG EFFECT DECREASED [None]
  - DRUG EXPOSURE DURING PREGNANCY [None]
  - DRUG INTOLERANCE [None]
  - DYSPEPSIA [None]
  - DYSPNOEA [None]
  - HEADACHE [None]
  - HYPERTENSION [None]
  - INJURY [None]
  - INSOMNIA [None]
  - LACUNAR INFARCTION [None]
  - LUMBAR RADICULOPATHY [None]
  - NAUSEA [None]
  - NECK PAIN [None]
  - NERVOUS SYSTEM DISORDER [None]
  - PALPITATIONS [None]
  - POST CONCUSSION SYNDROME [None]
  - POST-TRAUMATIC STRESS DISORDER [None]
  - ROAD TRAFFIC ACCIDENT [None]
  - SINUSITIS [None]
